FAERS Safety Report 7787584-0 (Version None)
Quarter: 2011Q3

REPORT INFORMATION
  Report Type: 
  Country: None (occurrence: None)
  Receive Date: 20110929
  Receipt Date: 20110920
  Transmission Date: 20111222
  Serious: Yes (Death, Hospitalization, Other)
  Sender: FDA-Public Use
  Company Number: CA-BAXTER-2011BH028420

PATIENT
  Age: 88 Year
  Sex: Male
  Weight: 60 kg

DRUGS (2)
  1. DIANEAL [Suspect]
     Indication: PERITONEAL DIALYSIS
     Route: 033
     Dates: start: 19970101, end: 20110414
  2. EXTRANEAL [Suspect]
     Indication: PERITONEAL DIALYSIS
     Route: 033
     Dates: start: 19970101

REACTIONS (6)
  - ACUTE MYOCARDIAL INFARCTION [None]
  - FALL [None]
  - OEDEMA PERIPHERAL [None]
  - DRY GANGRENE [None]
  - RASH [None]
  - GENERAL PHYSICAL HEALTH DETERIORATION [None]
